FAERS Safety Report 20422150 (Version 3)
Quarter: 2022Q2

REPORT INFORMATION
  Report Type: Report from Study
  Country: BE (occurrence: BE)
  Receive Date: 20220203
  Receipt Date: 20220511
  Transmission Date: 20220720
  Serious: Yes (Death, Life-Threatening, Hospitalization, Disabling, Other)
  Sender: FDA-Public Use
  Company Number: BE-PFIZER INC-202101214653

PATIENT
  Age: 83 Year
  Sex: Male

DRUGS (14)
  1. VYNDAQEL [Suspect]
     Active Substance: TAFAMIDIS MEGLUMINE
     Indication: Cardiac amyloidosis
     Dosage: 20 MG, 1X/DAY AT 8 AM
     Dates: end: 202109
  2. TAFAMIDIS [Suspect]
     Active Substance: TAFAMIDIS
     Dosage: 61 MG, 1X/DAY
     Route: 048
     Dates: start: 20201103, end: 20210915
  3. ALLOPURINOL [Concomitant]
     Active Substance: ALLOPURINOL
     Dosage: 300 MG, 1X/DAY AT 8:00
  4. ATORVASTATIN CALCIUM [Concomitant]
     Active Substance: ATORVASTATIN CALCIUM
     Dosage: 40 MG, 1X/DAY AT 8:00
  5. BISOPROLOL [Concomitant]
     Active Substance: BISOPROLOL
     Dosage: 2.5 MG, 1X/DAY AT 8:00
  6. BUMETANIDE [Concomitant]
     Active Substance: BUMETANIDE
     Indication: Oedema peripheral
     Dosage: 1 MG, AS NEEDED
  7. BUMETANIDE [Concomitant]
     Active Substance: BUMETANIDE
     Indication: Peripheral swelling
  8. FERROUS SULFATE [Concomitant]
     Active Substance: FERROUS SULFATE
     Dosage: 80 MG, 1X/DAY AT 8:00
  9. XARELTO [Concomitant]
     Active Substance: RIVAROXABAN
     Dosage: 15 MG, 1X/DAY AT 8:00
  10. VALSARTAN [Concomitant]
     Active Substance: VALSARTAN
     Dosage: 320 MG AT 8 AM
  11. CHOLECALCIFEROL [Concomitant]
     Active Substance: CHOLECALCIFEROL
     Dosage: 25000 IU, ONCE EVERY TWO WEEKS, 08:00
  12. DUPHALAC [Concomitant]
     Active Substance: LACTULOSE
     Dosage: 5 ML, VIAL 1000 ML, AT 8 AM
  13. METFORMIN HYDROCHLORIDE [Concomitant]
     Active Substance: METFORMIN HYDROCHLORIDE
     Indication: Type 2 diabetes mellitus
     Dosage: 500 MG, 2X/DAY
  14. SILDENAFIL [Concomitant]
     Active Substance: SILDENAFIL
     Dosage: 100 MG, IN CASE OF ERECTILE DYSFUNCTION (MAX 1)

REACTIONS (5)
  - Acute kidney injury [Fatal]
  - Interstitial lung disease [Not Recovered/Not Resolved]
  - Colon cancer [Unknown]
  - Interstitial lung disease [Not Recovered/Not Resolved]
  - Condition aggravated [Not Recovered/Not Resolved]

NARRATIVE: CASE EVENT DATE: 20201201
